FAERS Safety Report 5587816-3 (Version None)
Quarter: 2008Q1

REPORT INFORMATION
  Report Type: 
  Country: None (occurrence: None)
  Receive Date: 20080109
  Receipt Date: 20080109
  Transmission Date: 20080703
  Serious: Yes (Hospitalization, Other)
  Sender: FDA-Public Use
  Company Number: None

PATIENT
  Age: 2 Month
  Sex: Female
  Weight: 4 kg

DRUGS (1)
  1. VINBLASTINE SULFATE [Suspect]
     Dosage: 1.5  WEKLY  IV DRIP
     Route: 041

REACTIONS (4)
  - FATIGUE [None]
  - MEDICATION ERROR [None]
  - OVERDOSE [None]
  - WRONG DRUG ADMINISTERED [None]
